FAERS Safety Report 4684160-3 (Version None)
Quarter: 2005Q2

REPORT INFORMATION
  Report Type: 
  Country: None (occurrence: None)
  Receive Date: 20050607
  Receipt Date: 20040827
  Transmission Date: 20051028
  Serious: Yes (Hospitalization)
  Sender: FDA-Public Use
  Company Number: FR-GLAXOSMITHKLINE-B0343865A

PATIENT
  Age: 40 Year
  Sex: Female

DRUGS (5)
  1. AUGMENTIN '125' [Suspect]
     Indication: ESCHERICHIA SEPSIS
     Route: 042
     Dates: start: 20040818, end: 20040821
  2. MARCAINE [Concomitant]
     Route: 037
     Dates: start: 20040816, end: 20040816
  3. AMIKACIN [Concomitant]
     Indication: ESCHERICHIA SEPSIS
     Dosage: 1G PER DAY
     Route: 042
     Dates: start: 20040818, end: 20040823
  4. CIFLOX [Concomitant]
     Route: 065
     Dates: start: 20040818
  5. PERFALGAN [Concomitant]

REACTIONS (3)
  - BLOOD GLUCOSE INCREASED [None]
  - THROMBOCYTOPENIA [None]
  - TRANSAMINASES INCREASED [None]
